FAERS Safety Report 9580839 (Version 2)
Quarter: 2013Q4

REPORT INFORMATION
  Report Type: Spontaneous
  Country: US (occurrence: US)
  Receive Date: 20131002
  Receipt Date: 20131002
  Transmission Date: 20140711
  Serious: Yes (Hospitalization, Other)
  Sender: FDA-Public Use
  Company Number: US-GILEAD-2013-0083938

PATIENT
  Sex: Female

DRUGS (23)
  1. LETAIRIS [Suspect]
     Indication: PULMONARY HYPERTENSION
     Dosage: 10 MG, UNK
     Dates: start: 20080711
  2. LETAIRIS [Suspect]
     Indication: SCLERODERMA
  3. CIPROFLOXACIN [Concomitant]
     Indication: URINARY TRACT INFECTION
  4. BACTRIM [Concomitant]
     Indication: URINARY TRACT INFECTION
  5. PREDNISONE [Concomitant]
  6. PERCOCET                           /00446701/ [Concomitant]
  7. AMLODIPINE [Concomitant]
  8. LAC-HYDRIN [Concomitant]
  9. VITRON C [Concomitant]
  10. ASCRIPTIN [Concomitant]
  11. COREG [Concomitant]
  12. CORMAX [Concomitant]
  13. SENOKOT-S [Concomitant]
  14. NEXIUM                             /01479302/ [Concomitant]
  15. LUNESTA [Concomitant]
  16. FLUOCINOLONE [Concomitant]
  17. LASIX                              /00032601/ [Concomitant]
  18. GABAPENTIN [Concomitant]
  19. LISINOPRIL [Concomitant]
  20. ASMANEX [Concomitant]
  21. MULTIVITAMINS [Concomitant]
  22. FISH OIL [Concomitant]
  23. KLOR CON [Concomitant]

REACTIONS (2)
  - Sarcoidosis [Unknown]
  - Hypercalcaemia [Recovered/Resolved]
